FAERS Safety Report 11813342 (Version 7)
Quarter: 2017Q2

REPORT INFORMATION
  Report Type: Report from Study
  Country: AU (occurrence: AU)
  Receive Date: 20151209
  Receipt Date: 20170607
  Transmission Date: 20170829
  Serious: Yes (Hospitalization)
  Sender: FDA-Public Use
  Company Number: AU-ROCHE-1671391

PATIENT
  Age: 77 Year
  Sex: Female
  Weight: 76 kg

DRUGS (13)
  1. PARIET [Concomitant]
     Active Substance: RABEPRAZOLE SODIUM
     Indication: GASTROOESOPHAGEAL REFLUX DISEASE
     Route: 065
     Dates: end: 20151103
  2. BACLOFEN. [Concomitant]
     Active Substance: BACLOFEN
     Indication: MUSCULOSKELETAL STIFFNESS
  3. CALMURID (AUSTRALIA) [Concomitant]
     Route: 065
     Dates: start: 20150810
  4. CIPRAMIL [Concomitant]
     Active Substance: CITALOPRAM HYDROBROMIDE
     Indication: ANXIETY
  5. ROSUVASTATIN. [Concomitant]
     Active Substance: ROSUVASTATIN
  6. PANADOL [Concomitant]
     Active Substance: ACETAMINOPHEN
     Indication: TRIGEMINAL NEURALGIA
  7. KEFLEXIN [Concomitant]
     Active Substance: CEPHALEXIN ANHYDROUS
     Indication: UPPER RESPIRATORY TRACT INFECTION
     Route: 065
     Dates: start: 20151021
  8. VEMURAFENIB [Suspect]
     Active Substance: VEMURAFENIB
     Indication: MALIGNANT MELANOMA
     Dosage: DATE OF MOST RECENT DOSE (720 MG) PRIOR TO SAE (1ST OCCURRENCE OF PERICARDITIS): 23/OCT/2015?DATE OF
     Route: 048
     Dates: start: 20150721
  9. RANITIDINE. [Concomitant]
     Active Substance: RANITIDINE
     Indication: GASTROOESOPHAGEAL REFLUX DISEASE
     Route: 065
     Dates: start: 20151104, end: 20151221
  10. OROXINE [Concomitant]
     Active Substance: LEVOTHYROXINE SODIUM
     Indication: HYPOTHYROIDISM
  11. CIPRAMIL [Concomitant]
     Active Substance: CITALOPRAM HYDROBROMIDE
     Indication: DEPRESSION
  12. TRICORTON [Concomitant]
     Indication: DERMATITIS EXFOLIATIVE
     Route: 065
     Dates: start: 20150730
  13. PANTOPRAZOLE [Concomitant]
     Active Substance: PANTOPRAZOLE
     Indication: GASTROOESOPHAGEAL REFLUX DISEASE
     Route: 065
     Dates: start: 20151110

REACTIONS (2)
  - Pericarditis [Recovered/Resolved]
  - Pericarditis [Recovered/Resolved]

NARRATIVE: CASE EVENT DATE: 20151107
